FAERS Safety Report 5673996-8 (Version None)
Quarter: 2008Q1

REPORT INFORMATION
  Report Type: 
  Country: None (occurrence: None)
  Receive Date: 20080319
  Receipt Date: 20080319
  Transmission Date: 20080703
  Serious: Yes (Hospitalization)
  Sender: FDA-Public Use
  Company Number: None

PATIENT
  Age: 85 Year
  Sex: Female
  Weight: 68 kg

DRUGS (7)
  1. CELECOXIB [Suspect]
     Indication: ARTHRITIS
     Dosage: 200MG DAILY PO
     Route: 048
  2. IRON [Concomitant]
  3. GLIPIZIDE [Concomitant]
  4. MICARDIS [Concomitant]
  5. TIAZAC [Concomitant]
  6. HYDROCHLOROTHIAZIDE [Concomitant]
  7. PRAVACHOL [Concomitant]

REACTIONS (1)
  - UPPER GASTROINTESTINAL HAEMORRHAGE [None]
